FAERS Safety Report 8109117-1 (Version None)
Quarter: 2012Q1

REPORT INFORMATION
  Report Type: 
  Country: None (occurrence: None)
  Receive Date: 20120202
  Receipt Date: 20120109
  Transmission Date: 20120608
  Serious: No
  Sender: FDA-Public Use
  Company Number: US-AMGEN-USASP2011068805

PATIENT
  Age: 63 Year
  Sex: Male

DRUGS (1)
  1. ENBREL [Suspect]
     Indication: RHEUMATOID ARTHRITIS
     Dosage: 50 MG, QWK
     Dates: start: 20111129

REACTIONS (8)
  - GALLBLADDER DISORDER [None]
  - SINUS CONGESTION [None]
  - BLOOD GLUCOSE INCREASED [None]
  - BLOOD TEST ABNORMAL [None]
  - NASOPHARYNGITIS [None]
  - GINGIVAL PAIN [None]
  - AXILLARY MASS [None]
  - RESPIRATORY TRACT CONGESTION [None]
